FAERS Safety Report 15537576 (Version 1)
Quarter: 2018Q4

REPORT INFORMATION
  Report Type: Spontaneous
  Country: US (occurrence: US)
  Receive Date: 20181022
  Receipt Date: 20181022
  Transmission Date: 20190205
  Serious: Yes (Death)
  Sender: FDA-Public Use
  Company Number: None

PATIENT
  Sex: Male

DRUGS (13)
  1. SILDENAFIL. [Suspect]
     Active Substance: SILDENAFIL
     Route: 048
     Dates: start: 20180419, end: 20180727
  2. GABAPENTIN. [Concomitant]
     Active Substance: GABAPENTIN
  3. MAG OXIDE [Concomitant]
     Active Substance: MAGNESIUM OXIDE
  4. BUPROPION. [Concomitant]
     Active Substance: BUPROPION
  5. CARVEDILOL. [Concomitant]
     Active Substance: CARVEDILOL
  6. METOPROLOL. [Concomitant]
     Active Substance: METOPROLOL
  7. FAMOTIDINE. [Concomitant]
     Active Substance: FAMOTIDINE
  8. MIRTAZAPINE. [Concomitant]
     Active Substance: MIRTAZAPINE
  9. RISPERIDONE. [Concomitant]
     Active Substance: RISPERIDONE
  10. TETRACYCLINE [Concomitant]
     Active Substance: TETRACYCLINE
  11. LISINOPRIL. [Concomitant]
     Active Substance: LISINOPRIL
  12. BUFFERIN [Concomitant]
     Active Substance: ASPIRIN
  13. WARFARIN [Concomitant]
     Active Substance: WARFARIN

REACTIONS (1)
  - Death [None]
